FAERS Safety Report 6137204-6 (Version None)
Quarter: 2009Q1

REPORT INFORMATION
  Report Type: 
  Country: None (occurrence: None)
  Receive Date: 20090330
  Receipt Date: 20090320
  Transmission Date: 20090719
  Serious: Yes (Hospitalization, Disabling)
  Sender: FDA-Public Use
  Company Number: FI-SANOFI-SYNTHELABO-A01200903120

PATIENT
  Sex: Female

DRUGS (3)
  1. AVASTIN [Suspect]
     Indication: ADENOCARCINOMA
     Route: 041
     Dates: start: 20080918, end: 20081020
  2. XELODA [Suspect]
     Indication: ADENOCARCINOMA
     Dosage: 2000 - 3000 MG
     Route: 048
     Dates: start: 20080222, end: 20081020
  3. ELOXATIN [Suspect]
     Indication: ADENOCARCINOMA
     Route: 041
     Dates: start: 20080516, end: 20080516

REACTIONS (3)
  - BLINDNESS [None]
  - DEPRESSED LEVEL OF CONSCIOUSNESS [None]
  - REVERSIBLE POSTERIOR LEUKOENCEPHALOPATHY SYNDROME [None]
